FAERS Safety Report 10004349 (Version 1)
Quarter: 2014Q1

REPORT INFORMATION
  Report Type: Spontaneous
  Country: US (occurrence: US)
  Receive Date: 20140312
  Receipt Date: 20140312
  Transmission Date: 20141002
  Serious: No
  Sender: FDA-Public Use
  Company Number: US-PFIZER INC-2014068652

PATIENT
  Age: 47 Year
  Sex: Female
  Weight: 59.86 kg

DRUGS (3)
  1. CHANTIX [Suspect]
     Indication: SMOKING CESSATION THERAPY
     Dosage: 0.5 MG, DAILY
     Dates: start: 20140111, end: 2014
  2. CHANTIX [Suspect]
     Dosage: UNK, 3X/DAY (EVERY 8 HOURS)
     Dates: start: 2014, end: 2014
  3. CHANTIX [Suspect]
     Dosage: UNK, EVERY 4 HOURS
     Dates: start: 2014, end: 2014

REACTIONS (5)
  - Rash [Unknown]
  - Skin discolouration [Unknown]
  - Intentional drug misuse [Unknown]
  - Vomiting [Unknown]
  - Weight decreased [Unknown]
